FAERS Safety Report 19876616 (Version 8)
Quarter: 2022Q1

REPORT INFORMATION
  Report Type: Report from Study
  Country: CO (occurrence: CO)
  Receive Date: 20210924
  Receipt Date: 20220224
  Transmission Date: 20220424
  Serious: Yes (Other)
  Sender: FDA-Public Use
  Company Number: CO-AMGEN-COLSL2021144154

PATIENT
  Age: 47 Year
  Sex: Female
  Weight: 72 kg

DRUGS (13)
  1. ADALIMUMAB [Suspect]
     Active Substance: ADALIMUMAB
     Indication: Ankylosing spondylitis
     Dosage: 40 MILLIGRAM, Q2WK
     Route: 058
     Dates: start: 20210525, end: 20211007
  2. ADALIMUMAB [Suspect]
     Active Substance: ADALIMUMAB
     Dosage: 40 MILLIGRAM, Q2WK
     Route: 058
     Dates: start: 20211109
  3. BUPRENORPHINE [Concomitant]
     Active Substance: BUPRENORPHINE
  4. LIDOCAINE [Concomitant]
     Active Substance: LIDOCAINE
  5. CAPSAICIN [Concomitant]
     Active Substance: CAPSAICIN
  6. MONTELUKAST [Concomitant]
     Active Substance: MONTELUKAST SODIUM
     Indication: Asthma
  7. LORATADINE [Concomitant]
     Active Substance: LORATADINE
     Indication: Asthma
  8. BUPROPION [Concomitant]
     Active Substance: BUPROPION
     Indication: Anxiety
     Dosage: 1 TABLET, QD
  9. BUPROPION [Concomitant]
     Active Substance: BUPROPION
     Indication: Depression
  10. KETAMINE [Concomitant]
     Active Substance: KETAMINE
     Indication: Anxiety
     Dosage: 2 TABLETS , QD
  11. KETAMINE [Concomitant]
     Active Substance: KETAMINE
     Indication: Depression
  12. VITAMIN B [Concomitant]
     Active Substance: VITAMIN B
     Dosage: UNK UNK, QMO
  13. COVID-19 VACCINE [Concomitant]

REACTIONS (12)
  - Gastrooesophageal reflux disease [Not Recovered/Not Resolved]
  - Pain [Not Recovered/Not Resolved]
  - Drug ineffective [Not Recovered/Not Resolved]
  - Decreased immune responsiveness [Not Recovered/Not Resolved]
  - Cough [Recovered/Resolved]
  - Alopecia [Not Recovered/Not Resolved]
  - Headache [Recovered/Resolved]
  - Musculoskeletal stiffness [Not Recovered/Not Resolved]
  - Chills [Recovered/Resolved]
  - Fatigue [Not Recovered/Not Resolved]
  - Muscular weakness [Not Recovered/Not Resolved]
  - Vomiting [Recovered/Resolved]

NARRATIVE: CASE EVENT DATE: 20210917
